FAERS Safety Report 22143644 (Version 1)
Quarter: 2023Q1

REPORT INFORMATION
  Report Type: Spontaneous
  Country: GR (occurrence: GR)
  Receive Date: 20230327
  Receipt Date: 20230327
  Transmission Date: 20230418
  Serious: Yes (Other)
  Sender: FDA-Public Use
  Company Number: GR-JNJFOC-20230343881

PATIENT

DRUGS (2)
  1. IBRUTINIB [Suspect]
     Active Substance: IBRUTINIB
     Indication: Waldenstrom^s macroglobulinaemia
     Route: 048
  2. RITUXIMAB [Suspect]
     Active Substance: RITUXIMAB
     Indication: Waldenstrom^s macroglobulinaemia
     Route: 065

REACTIONS (9)
  - Neutropenia [Unknown]
  - Gastrointestinal amyloidosis [Unknown]
  - Thrombocytopenia [Unknown]
  - Pyrexia [Unknown]
  - Hypertension [Unknown]
  - Diarrhoea [Unknown]
  - Anaemia [Unknown]
  - Increased tendency to bruise [Unknown]
  - Upper respiratory tract infection [Unknown]
